FAERS Safety Report 5730813-5 (Version None)
Quarter: 2008Q2

REPORT INFORMATION
  Report Type: 
  Country: None (occurrence: None)
  Receive Date: 20080430
  Receipt Date: 20080117
  Transmission Date: 20081010
  Serious: No
  Sender: FDA-Public Use
  Company Number: 2007PV033286

PATIENT
  Age: 40 Year
  Sex: Female

DRUGS (6)
  1. SYMLIN [Suspect]
     Indication: TYPE 1 DIABETES MELLITUS
     Dosage: 30 MCG;TID;SC, 18 MCG;TID;SC, 54 MCG;TID;SC
     Route: 058
     Dates: start: 20070701, end: 20070101
  2. SYMLIN [Suspect]
     Indication: TYPE 1 DIABETES MELLITUS
     Dosage: 30 MCG;TID;SC, 18 MCG;TID;SC, 54 MCG;TID;SC
     Route: 058
     Dates: start: 20070701, end: 20070701
  3. SYMLIN [Suspect]
     Indication: TYPE 1 DIABETES MELLITUS
     Dosage: 30 MCG;TID;SC, 18 MCG;TID;SC, 54 MCG;TID;SC
     Route: 058
     Dates: start: 20070101
  4. HUMALOG [Concomitant]
  5. ENALAPRIL MALEATE [Concomitant]
  6. THYROID MEDICINE [Concomitant]

REACTIONS (4)
  - BLOOD GLUCOSE INCREASED [None]
  - DIARRHOEA [None]
  - GLYCOSYLATED HAEMOGLOBIN INCREASED [None]
  - NAUSEA [None]
